FAERS Safety Report 22368850 (Version 1)
Quarter: 2023Q2

REPORT INFORMATION
  Report Type: Report from Study
  Country: US (occurrence: None)
  Receive Date: 20230525
  Receipt Date: 20230525
  Transmission Date: 20230721
  Serious: Yes (Hospitalization)
  Sender: FDA-Public Use
  Company Number: 2023A116970

PATIENT
  Sex: Female
  Weight: 47.6 kg

DRUGS (2)
  1. TAGRISSO [Suspect]
     Active Substance: OSIMERTINIB
     Indication: Lung carcinoma cell type unspecified stage 0
     Route: 048
     Dates: start: 202303
  2. TAGRISSO [Suspect]
     Active Substance: OSIMERTINIB
     Indication: Metastases to central nervous system
     Route: 048
     Dates: start: 202303

REACTIONS (7)
  - Hyperhidrosis [Unknown]
  - Weight decreased [Unknown]
  - Swelling [Unknown]
  - Cough [Unknown]
  - Sleep disorder [Unknown]
  - Skin warm [Unknown]
  - Off label use [Unknown]
